FAERS Safety Report 8612831-2 (Version None)
Quarter: 2012Q3

REPORT INFORMATION
  Report Type: 
  Country: None (occurrence: None)
  Receive Date: 20120822
  Receipt Date: 20120323
  Transmission Date: 20120928
  Serious: No
  Sender: FDA-Public Use
  Company Number: US-ASTRAZENECA-2011SE05187

PATIENT
  Age: 66 Year
  Sex: Male
  Weight: 63.5 kg

DRUGS (4)
  1. SYMBICORT [Suspect]
     Indication: CHRONIC OBSTRUCTIVE PULMONARY DISEASE
     Dosage: 160/4.5 MCG ONE PUFF PER DAY
     Route: 055
  2. SYMBICORT [Suspect]
     Dosage: 160/4.5 MCG TWO PUFFS TWICE A DAY
     Route: 055
  3. SYMBICORT [Suspect]
     Indication: EMPHYSEMA
     Dosage: 160/4.5 MCG ONE PUFF PER DAY
     Route: 055
  4. SYMBICORT [Suspect]
     Dosage: 160/4.5 MCG TWO PUFFS TWICE A DAY
     Route: 055

REACTIONS (3)
  - DYSPNOEA [None]
  - DRUG DOSE OMISSION [None]
  - OFF LABEL USE [None]
